FAERS Safety Report 9836540 (Version 1)
Quarter: 2014Q1

REPORT INFORMATION
  Report Type: Report from Study
  Country: ES (occurrence: ES)
  Receive Date: 20140123
  Receipt Date: 20140123
  Transmission Date: 20141002
  Serious: Yes (Death, Other)
  Sender: FDA-Public Use
  Company Number: ES-ROCHE-1335361

PATIENT
  Sex: 0

DRUGS (25)
  1. RITUXIMAB [Suspect]
     Indication: BURKITT^S LYMPHOMA
     Dosage: CYCLE A, DAY 7 FOR 4 HOURS
     Route: 042
  2. RITUXIMAB [Suspect]
     Dosage: CYCLE B, DAY 28 FOR 4 HOURS
     Route: 042
  3. RITUXIMAB [Suspect]
     Dosage: CYCLE C, DAY 49 FOR 4 HOURS
     Route: 042
  4. RITUXIMAB [Suspect]
     Dosage: 8 DOSES OF TRIPLE INTRATHECAL  THERAPY OF RITUXIMAB (FROM DAY 1 TO 8 , FROM DAY 8 TO 12 FROM DAY 12
     Route: 037
  5. CYCLOPHOSPHAMIDE [Suspect]
     Indication: BURKITT^S LYMPHOMA
     Dosage: PREPHASE (DAY 1 TO 5) FOR 1 HOUR
     Route: 042
  6. CYCLOPHOSPHAMIDE [Suspect]
     Dosage: CYCLE B: DAY 29- 33  FOR 1 HOUR
     Route: 042
  7. PREDNISONE [Suspect]
     Indication: BURKITT^S LYMPHOMA
     Dosage: PREPHASE (1-5 DAYS)
     Route: 040
  8. VINCRISTINE [Suspect]
     Indication: BURKITT^S LYMPHOMA
     Dosage: 2 MG ABSOLUTE CYCLE A: DAY 8 FOR ONE DAY
     Route: 040
  9. VINCRISTINE [Suspect]
     Dosage: 2 MG ABSOLUTE CYCLE B: DAY 29  FOR ONE DAY
     Route: 040
  10. VINCRISTINE [Suspect]
     Dosage: 2 MG ABSOLUTE CYCLE C: DAY 50  FOR ONE DAY
     Route: 040
  11. METHOTREXATE [Suspect]
     Indication: BURKITT^S LYMPHOMA
     Dosage: CYCLE A: DAY 8 OVER 24 HOURS
     Route: 042
  12. METHOTREXATE [Suspect]
     Dosage: CYCLE B: DAY 29 OVER 24 HOURS
     Route: 042
  13. METHOTREXATE [Suspect]
     Dosage: CYCLE C: DAY 50 OVER 24 HOURS
     Route: 042
  14. DEXAMETHASONE [Suspect]
     Indication: BURKITT^S LYMPHOMA
     Dosage: CYCLE A: 8 TO 12 DAYS
     Route: 040
  15. DEXAMETHASONE [Suspect]
     Dosage: CYCLE B: 29-33 DAYS
     Route: 040
  16. DEXAMETHASONE [Suspect]
     Dosage: CYCLE C: 50-54DAYS
     Route: 040
  17. DEXAMETHASONE [Suspect]
     Route: 065
  18. TENIPOSIDE [Suspect]
     Indication: BURKITT^S LYMPHOMA
     Dosage: CYCLE A: DAYS 11- 12 OVER 1 HOUR.
     Route: 042
  19. CYTARABINE [Suspect]
     Indication: BURKITT^S LYMPHOMA
     Dosage: CYCLE A: DAYS 11- 12, OVER 1 HOUR EVERY 12 HOURS.
     Route: 042
  20. CYTARABINE [Suspect]
     Dosage: CYCLE C: DAY 54, OVER 3 HOUR EVERY 12 HOURS.
     Route: 042
  21. CYTARABINE [Suspect]
     Route: 065
  22. DOXORUBICIN [Suspect]
     Indication: BURKITT^S LYMPHOMA
     Dosage: CYCLE B: DAYS 32- 33, OVER 15 MINS
     Route: 042
  23. ETOPOSIDE [Suspect]
     Indication: BURKITT^S LYMPHOMA
     Dosage: CYCLE C: OVER 1 HOUR
     Route: 042
  24. FOLINIC ACID [Suspect]
     Indication: BURKITT^S LYMPHOMA
     Dosage: FOR 12 HOURS AT THE END OF METHOTREXATE INFUISON.
     Route: 065
  25. VINDESINE [Suspect]
     Indication: BURKITT^S LYMPHOMA
     Dosage: CYCLE C: DAY 50 (MAX 5 MG)
     Route: 040

REACTIONS (10)
  - Aspergillus infection [Fatal]
  - Escherichia sepsis [Fatal]
  - Pneumonia klebsiella [Fatal]
  - Pseudomonas infection [Fatal]
  - Septic shock [Fatal]
  - Sepsis [Fatal]
  - Pneumonia [Fatal]
  - Systemic mycosis [Fatal]
  - Bone marrow failure [Unknown]
  - Mucosal inflammation [Unknown]
